FAERS Safety Report 15369392 (Version 1)
Quarter: 2018Q3

REPORT INFORMATION
  Report Type: Spontaneous
  Country: US (occurrence: US)
  Receive Date: 20180904
  Receipt Date: 20180904
  Transmission Date: 20181010
  Serious: Yes (Hospitalization)
  Sender: FDA-Public Use
  Company Number: None

PATIENT
  Age: 80 Year
  Sex: Female

DRUGS (1)
  1. XELJANZ XR [Suspect]
     Active Substance: TOFACITINIB CITRATE
     Route: 048
     Dates: start: 20180216

REACTIONS (5)
  - Headache [None]
  - Hypoaesthesia [None]
  - Drug dose omission [None]
  - Dizziness [None]
  - Intestinal obstruction [None]

NARRATIVE: CASE EVENT DATE: 20180829
